FAERS Safety Report 6659501-8 (Version None)
Quarter: 2010Q1

REPORT INFORMATION
  Report Type: 
  Country: None (occurrence: None)
  Receive Date: 20100330
  Receipt Date: 20100317
  Transmission Date: 20100710
  Serious: Yes (Hospitalization, Other)
  Sender: FDA-Public Use
  Company Number: US-ELI_LILLY_AND_COMPANY-US200912001733

PATIENT
  Sex: Female
  Weight: 70.3 kg

DRUGS (8)
  1. ALIMTA [Suspect]
     Indication: BREAST CANCER METASTATIC
     Dosage: 1050 MG/M2, EVERY 3 WEEKS
     Route: 042
     Dates: start: 20091008
  2. FOLIC ACID [Concomitant]
     Dosage: 1 MG, DAILY (1/D)
  3. VITAMIN B-12 [Concomitant]
     Dosage: 1000 UG, PRIOR TO TREATMENT
     Route: 058
  4. DECADRON [Concomitant]
     Dosage: 8 MG, DAY BEFORE, DAY OF, AND DAY AFTER TREATMENT
  5. SENNA [Concomitant]
  6. MIRALAX [Concomitant]
     Dosage: 17 G, AS NEEDED
  7. TYKERB [Concomitant]
  8. NORCO [Concomitant]
     Dosage: UNK, AS NEEDED

REACTIONS (4)
  - ABSCESS BACTERIAL [None]
  - DEHYDRATION [None]
  - HEADACHE [None]
  - NEUTROPENIA [None]
